FAERS Safety Report 15619509 (Version 1)
Quarter: 2018Q4

REPORT INFORMATION
  Report Type: Report from Study
  Country: None (occurrence: US)
  Receive Date: 20181115
  Receipt Date: 20181115
  Transmission Date: 20190205
  Serious: Yes (Hospitalization, Other)
  Sender: FDA-Public Use
  Company Number: US-ABBVIE-18S-163-2548600-00

PATIENT
  Age: 64 Year
  Sex: Male

DRUGS (1)
  1. CREON [Suspect]
     Active Substance: PANCRELIPASE AMYLASE\PANCRELIPASE LIPASE\PANCRELIPASE PROTEASE
     Indication: PRODUCT USED FOR UNKNOWN INDICATION
     Route: 048

REACTIONS (24)
  - Coronary artery disease [Unknown]
  - Coronary arterial stent insertion [Unknown]
  - Peripheral vascular disorder [Unknown]
  - Limb injury [Unknown]
  - Alcohol withdrawal syndrome [Unknown]
  - Arthroscopy [Unknown]
  - Large intestine polyp [Unknown]
  - Vascular injury [Unknown]
  - Oesophagogastroduodenoscopy [Recovered/Resolved]
  - Coronary arterial stent insertion [Unknown]
  - Skin graft [Unknown]
  - Osteomyelitis [Unknown]
  - Coronary angioplasty [Unknown]
  - Road traffic accident [Unknown]
  - Coronary artery bypass [Unknown]
  - Myocardial infarction [Unknown]
  - Thermal burn [Unknown]
  - Leg amputation [Unknown]
  - Vascular graft [Unknown]
  - Cataract [Unknown]
  - Leg amputation [Unknown]
  - Type 2 diabetes mellitus [Unknown]
  - Endoscopy [Unknown]
  - Oesophagogastroduodenoscopy [Unknown]

NARRATIVE: CASE EVENT DATE: 1994
